FAERS Safety Report 23061445 (Version 1)
Quarter: 2023Q4

REPORT INFORMATION
  Report Type: Spontaneous
  Country: GB (occurrence: None)
  Receive Date: 20231013
  Receipt Date: 20231013
  Transmission Date: 20240110
  Serious: Yes (Other)
  Sender: FDA-Public Use
  Company Number: GB-ARIS GLOBAL-SUP202310-003948

PATIENT
  Age: 58 Year
  Sex: Female

DRUGS (1)
  1. TOPIRAMATE [Suspect]
     Active Substance: TOPIRAMATE
     Indication: Migraine
     Dosage: NOT PROVIDED
     Route: 048

REACTIONS (6)
  - Retinopathy [Unknown]
  - Blindness [Unknown]
  - Delayed light adaptation [Unknown]
  - Blindness day [Unknown]
  - Dyschromatopsia [Unknown]
  - Pigmentary maculopathy [Unknown]
